FAERS Safety Report 11554266 (Version 1)
Quarter: 2015Q3

REPORT INFORMATION
  Report Type: Spontaneous
  Country: US (occurrence: None)
  Receive Date: 20150924
  Receipt Date: 20150924
  Transmission Date: 20151125
  Serious: No
  Sender: FDA-Public Use
  Company Number: None

PATIENT
  Age: 51 Year
  Sex: Female

DRUGS (5)
  1. IBRANCE [Suspect]
     Active Substance: PALBOCICLIB
     Indication: BREAST CANCER
     Route: 048
     Dates: start: 201506, end: 201509
  2. ZOLADEX [Concomitant]
     Active Substance: GOSERELIN ACETATE
  3. DEXAMETHASON [Concomitant]
     Active Substance: DEXAMETHASONE
  4. XGEVA [Concomitant]
     Active Substance: DENOSUMAB
  5. FEMARA [Concomitant]
     Active Substance: LETROZOLE

REACTIONS (1)
  - Disease progression [None]

NARRATIVE: CASE EVENT DATE: 201509
